FAERS Safety Report 9257377 (Version 2)
Quarter: 2013Q2

REPORT INFORMATION
  Report Type: Spontaneous
  Country: TH (occurrence: TH)
  Receive Date: 20130426
  Receipt Date: 20130508
  Transmission Date: 20140414
  Serious: Yes (Hospitalization, Other)
  Sender: FDA-Public Use
  Company Number: TH-EISAI INC-E7389-03768-SPO-TH

PATIENT
  Age: 61 Year
  Sex: Female

DRUGS (1)
  1. HALAVEN [Suspect]
     Indication: BREAST CANCER METASTATIC
     Route: 041
     Dates: start: 20130409, end: 20130409

REACTIONS (5)
  - Hypotension [Recovering/Resolving]
  - Neutropenia [Unknown]
  - Asthenia [Recovering/Resolving]
  - Pyrexia [Recovering/Resolving]
  - Mucosal inflammation [Not Recovered/Not Resolved]
